FAERS Safety Report 6641773-7 (Version None)
Quarter: 2010Q1

REPORT INFORMATION
  Report Type: 
  Country: None (occurrence: None)
  Receive Date: 20100316
  Receipt Date: 20100301
  Transmission Date: 20100710
  Serious: Yes (Other)
  Sender: FDA-Public Use
  Company Number: 2010-00246

PATIENT
  Age: 49 Year
  Sex: Female
  Weight: 56.246 kg

DRUGS (5)
  1. RAMIPRIL [Suspect]
     Indication: DRUG USE FOR UNKNOWN INDICATION
     Dosage: 2.5 MG (1 IN 1 D), PER ORAL
     Route: 048
     Dates: start: 20091101, end: 20091101
  2. ATENOLOL [Concomitant]
  3. LASIX [Concomitant]
  4. EXJADE [Concomitant]
  5. EVISTA [Concomitant]

REACTIONS (1)
  - PULMONARY HYPERTENSION [None]
